FAERS Safety Report 12951695 (Version 1)
Quarter: 2016Q4

REPORT INFORMATION
  Report Type: Spontaneous
  Country: US (occurrence: US)
  Receive Date: 20161117
  Receipt Date: 20161117
  Transmission Date: 20170207
  Serious: Yes (Other)
  Sender: FDA-Public Use
  Company Number: US-ALSI-201600332

PATIENT
  Age: 71 Year
  Sex: Female

DRUGS (1)
  1. OXYGEN. [Suspect]
     Active Substance: OXYGEN

REACTIONS (3)
  - Off label use [Unknown]
  - Macular oedema [Recovering/Resolving]
  - Condition aggravated [Recovering/Resolving]
